FAERS Safety Report 23943673 (Version 2)
Quarter: 2025Q2

REPORT INFORMATION
  Report Type: Spontaneous
  Country: EG (occurrence: EG)
  Receive Date: 20240606
  Receipt Date: 20250618
  Transmission Date: 20250717
  Serious: Yes (Other)
  Sender: NOVO NORDISK
  Company Number: EG-NOVOPROD-1230665

PATIENT
  Age: 514 Month
  Sex: Female
  Weight: 63 kg

DRUGS (4)
  1. APIDRA [Concomitant]
     Active Substance: INSULIN GLULISINE
     Indication: Type 1 diabetes mellitus
     Route: 058
  2. RHINOCORT [Concomitant]
     Active Substance: BUDESONIDE
     Indication: Hypersensitivity
  3. TRESIBA [Suspect]
     Active Substance: INSULIN DEGLUDEC
     Indication: Type 1 diabetes mellitus
     Route: 058
  4. FUCIDIN (FUSIDIC ACID) [Concomitant]
     Active Substance: FUSIDIC ACID
     Indication: Antibiotic therapy
     Route: 061

REACTIONS (4)
  - Hypoglycaemia [Recovered/Resolved]
  - Device issue [Unknown]
  - Device delivery system issue [Unknown]
  - Hyperglycaemia [Not Recovered/Not Resolved]
